FAERS Safety Report 6104902-X (Version None)
Quarter: 2009Q1

REPORT INFORMATION
  Report Type: 
  Country: None (occurrence: None)
  Receive Date: 20090304
  Receipt Date: 20090220
  Transmission Date: 20090719
  Serious: Yes (Death)
  Sender: FDA-Public Use
  Company Number: GXKR2009US02266

PATIENT
  Age: 58 Year
  Sex: Male

DRUGS (7)
  1. AMITRIPTYLINE HCL [Suspect]
  2. FLUOXETINE [Suspect]
  3. ALPRAZOLAM [Concomitant]
  4. DEPAKOTE [Concomitant]
  5. FAMOTIDINE [Concomitant]
  6. HYDROCODONE (HYDROCODONE) [Concomitant]
  7. AUGMENTIN           (AMOXICILLIN, CLAVUANATE POTASSIUM) [Concomitant]

REACTIONS (7)
  - ALCOHOL USE [None]
  - CONTUSION [None]
  - CORONARY ARTERY DISEASE [None]
  - DRUG TOXICITY [None]
  - FOREIGN BODY TRAUMA [None]
  - HEPATIC CIRRHOSIS [None]
  - RIB FRACTURE [None]
